FAERS Safety Report 7064144-0 (Version None)
Quarter: 2010Q4

REPORT INFORMATION
  Report Type: 
  Country: None (occurrence: None)
  Receive Date: 20101027
  Receipt Date: 20101020
  Transmission Date: 20110411
  Serious: Yes (Other)
  Sender: FDA-Public Use
  Company Number: BR-BAYER-201020151LA

PATIENT
  Age: 3 Year
  Sex: Female

DRUGS (2)
  1. BETAFERON [Suspect]
     Indication: SECONDARY PROGRESSIVE MULTIPLE SCLEROSIS
     Route: 064
     Dates: start: 20060101
  2. VITAMIN TAB [Concomitant]
     Indication: GALACTORRHOEA
     Route: 064
     Dates: start: 20060101, end: 20070101

REACTIONS (1)
  - SMALL FOR DATES BABY [None]
